FAERS Safety Report 4928734-0 (Version None)
Quarter: 2006Q1

REPORT INFORMATION
  Report Type: 
  Country: None (occurrence: None)
  Receive Date: 20060227
  Receipt Date: 20060227
  Transmission Date: 20060701
  Serious: Yes (Hospitalization)
  Sender: FDA-Public Use
  Company Number: None

PATIENT
  Age: 69 Year
  Sex: Male
  Weight: 96.16 kg

DRUGS (1)
  1. AVASTIN [Suspect]
     Indication: COLON CANCER
     Dosage: 510 MG EVERY 2 WEEKS IV
     Route: 042
     Dates: start: 20051025, end: 20060127

REACTIONS (1)
  - NEPHROTIC SYNDROME [None]
